FAERS Safety Report 21807576 (Version 3)
Quarter: 2023Q2

REPORT INFORMATION
  Report Type: Report from Study
  Country: US (occurrence: US)
  Receive Date: 20230103
  Receipt Date: 20230529
  Transmission Date: 20230722
  Serious: Yes (Hospitalization, Other)
  Sender: FDA-Public Use
  Company Number: US-BoehringerIngelheim-2022-BI-161073

PATIENT
  Age: 71 Year
  Sex: Male

DRUGS (2)
  1. OFEV [Suspect]
     Active Substance: NINTEDANIB
     Indication: Idiopathic pulmonary fibrosis
     Route: 048
     Dates: start: 20220304
  2. OFEV [Suspect]
     Active Substance: NINTEDANIB
     Route: 048

REACTIONS (12)
  - Oesophageal rupture [Unknown]
  - Oesophageal haemorrhage [Unknown]
  - Biopsy lung [Unknown]
  - Decreased appetite [Unknown]
  - Diarrhoea [Recovered/Resolved]
  - Diarrhoea [Unknown]
  - Haematemesis [Unknown]
  - Abdominal pain upper [Unknown]
  - Weight decreased [Unknown]
  - Dry mouth [Unknown]
  - Urine abnormality [Unknown]
  - Intentional product use issue [Unknown]

NARRATIVE: CASE EVENT DATE: 20220301
